FAERS Safety Report 16624001 (Version 1)
Quarter: 2019Q3

REPORT INFORMATION
  Report Type: Other
  Country: FR (occurrence: FR)
  Receive Date: 20190724
  Receipt Date: 20190724
  Transmission Date: 20191004
  Serious: Yes (Hospitalization)
  Sender: FDA-Public Use
  Company Number: FR-DENTSPLY-2019SCDP000402

PATIENT
  Age: 28 Year
  Sex: Male

DRUGS (3)
  1. PROFENID [Concomitant]
     Active Substance: KETOPROFEN
     Indication: NERVE BLOCK
     Dosage: 100 MILLIGRAM, TOTAL
     Dates: start: 20190521, end: 20190521
  2. DEXAMETHASONE. [Concomitant]
     Active Substance: DEXAMETHASONE
     Indication: NERVE BLOCK
     Dosage: 30 MILLILITER, TOTAL
     Dates: start: 20190521, end: 20190521
  3. MEPIVACAINE HCL [Suspect]
     Active Substance: MEPIVACAINE HYDROCHLORIDE
     Indication: NERVE BLOCK
     Dosage: 30 MILLILITER
     Dates: start: 20190521, end: 20190521

REACTIONS (1)
  - Status epilepticus [Recovered/Resolved]

NARRATIVE: CASE EVENT DATE: 20190521
